FAERS Safety Report 16088361 (Version 3)
Quarter: 2019Q2

REPORT INFORMATION
  Report Type: Report from Study
  Country: US (occurrence: US)
  Receive Date: 20190319
  Receipt Date: 20190524
  Transmission Date: 20190711
  Serious: Yes (Hospitalization)
  Sender: FDA-Public Use
  Company Number: US-ASTELLAS-2019US010767

PATIENT
  Age: 79 Year
  Sex: Male

DRUGS (12)
  1. ENZALUTAMIDE [Suspect]
     Active Substance: ENZALUTAMIDE
     Indication: PROSTATE CANCER METASTATIC
     Route: 065
     Dates: start: 20181211
  2. LUPRON DEPOT [Concomitant]
     Active Substance: LEUPROLIDE ACETATE
     Indication: PRODUCT USED FOR UNKNOWN INDICATION
     Dosage: 22.5 MG, OTHER (EVERY 3 MONTHS)
     Route: 065
  3. PROVENGE [Suspect]
     Active Substance: SIPULEUCEL-T
     Indication: PRODUCT USED FOR UNKNOWN INDICATION
     Dosage: UNK UNK, UNKNOWN FREQ.
     Route: 065
     Dates: start: 201902
  4. ATORVASTATIN [Concomitant]
     Active Substance: ATORVASTATIN
     Indication: PRODUCT USED FOR UNKNOWN INDICATION
     Route: 065
  5. LATANOPROST. [Concomitant]
     Active Substance: LATANOPROST
     Indication: PRODUCT USED FOR UNKNOWN INDICATION
     Dosage: 0.005 %, ONCE DAILY (LEFT EYE)
     Route: 047
  6. LISINOPRIL. [Concomitant]
     Active Substance: LISINOPRIL
     Indication: PRODUCT USED FOR UNKNOWN INDICATION
     Route: 065
  7. ASPIRIN. [Concomitant]
     Active Substance: ASPIRIN
     Indication: PRODUCT USED FOR UNKNOWN INDICATION
     Route: 065
  8. PROVENGE [Suspect]
     Active Substance: SIPULEUCEL-T
     Dosage: UNK, UNKNOWN FREQ.
     Route: 065
     Dates: start: 201902
  9. PROVENGE [Suspect]
     Active Substance: SIPULEUCEL-T
     Dosage: UNK UNK, UNKNOWN FREQ.
     Route: 065
     Dates: start: 20190308
  10. CHLORTHALIDONE. [Concomitant]
     Active Substance: CHLORTHALIDONE
     Indication: PRODUCT USED FOR UNKNOWN INDICATION
     Route: 065
  11. NOVOLOG [Concomitant]
     Active Substance: INSULIN ASPART
     Indication: PRODUCT USED FOR UNKNOWN INDICATION
     Dosage: 35 UNITS, TWICE DAILY
  12. CIPROFLOXACIN HCL [Concomitant]
     Active Substance: CIPROFLOXACIN HYDROCHLORIDE
     Indication: PRODUCT USED FOR UNKNOWN INDICATION
     Route: 065

REACTIONS (8)
  - Urinary tract infection [Recovered/Resolved]
  - Pyrexia [Recovered/Resolved]
  - Lymphocyte count increased [Not Recovered/Not Resolved]
  - Fatigue [Not Recovered/Not Resolved]
  - Chills [Recovered/Resolved]
  - Tremor [Recovered/Resolved]
  - Renal impairment [Recovered/Resolved]
  - Asthenia [Not Recovered/Not Resolved]

NARRATIVE: CASE EVENT DATE: 20190302
